FAERS Safety Report 4833203-2 (Version None)
Quarter: 2005Q4

REPORT INFORMATION
  Report Type: 
  Country: None (occurrence: None)
  Receive Date: 20051117
  Receipt Date: 20051104
  Transmission Date: 20060501
  Serious: Yes (Hospitalization, Other)
  Sender: FDA-Public Use
  Company Number: KII-2005-0019408

PATIENT
  Age: 47 Year
  Sex: Male

DRUGS (6)
  1. MORPHINE SULFATE [Suspect]
     Indication: PAIN
     Dosage: ORAL
     Route: 048
  2. METHADONE HCL [Suspect]
     Indication: PAIN
     Dosage: ORAL
     Route: 048
  3. BENZODIAZEPINE DERIVATIVES () [Suspect]
     Dosage: ORAL
     Route: 048
  4. SSRI () [Suspect]
     Dosage: ORAL
     Route: 048
  5. GASTROINTESTINAL PREPARATION() [Suspect]
     Dosage: ORAL
     Route: 048
  6. THIAZIDES () [Suspect]
     Dosage: ORAL
     Route: 048

REACTIONS (4)
  - DEPRESSED LEVEL OF CONSCIOUSNESS [None]
  - POLYSUBSTANCE ABUSE [None]
  - RESTLESSNESS [None]
  - SINUS BRADYCARDIA [None]
